FAERS Safety Report 7929854-9 (Version None)
Quarter: 2011Q4

REPORT INFORMATION
  Report Type: 
  Country: None (occurrence: None)
  Receive Date: 20111121
  Receipt Date: 20111116
  Transmission Date: 20120403
  Serious: No
  Sender: FDA-Public Use
  Company Number: US-PFIZER INC-2011264592

PATIENT
  Sex: Male
  Weight: 79.365 kg

DRUGS (3)
  1. EFFEXOR [Suspect]
     Indication: DEPRESSION
     Dosage: 37.5 MG, ALTERNATE DAY
  2. FINASTERIDE [Concomitant]
     Indication: PROSTATIC DISORDER
     Dosage: 5 MG, 1X/DAY
  3. XALATAN [Concomitant]
     Indication: GLAUCOMA
     Dosage: UNK

REACTIONS (1)
  - HEAD DISCOMFORT [None]
